FAERS Safety Report 13951014 (Version 1)
Quarter: 2017Q3

REPORT INFORMATION
  Report Type: Report from Study
  Country: DE (occurrence: DE)
  Receive Date: 20170908
  Receipt Date: 20170908
  Transmission Date: 20171128
  Serious: Yes (Other)
  Sender: FDA-Public Use
  Company Number: DE-TEVA-805521ACC

PATIENT

DRUGS (3)
  1. BENDAMUSTINE HYDROCHLORIDE. [Suspect]
     Active Substance: BENDAMUSTINE HYDROCHLORIDE
     Indication: PLASMA CELL MYELOMA
     Dosage: (30 MIN INFUSION ON DAY 1 AND 2)
     Route: 042
  2. PREDNISOLONE. [Suspect]
     Active Substance: PREDNISOLONE
     Indication: PLASMA CELL MYELOMA
     Dosage: (ON DAYS 1-4)
     Route: 065
  3. REVLIMID [Suspect]
     Active Substance: LENALIDOMIDE
     Indication: PLASMA CELL MYELOMA
     Dosage: (ON DAYS 1-21)
     Route: 065

REACTIONS (1)
  - Polyneuropathy [Unknown]
